FAERS Safety Report 6377798-9 (Version None)
Quarter: 2009Q3

REPORT INFORMATION
  Report Type: 
  Country: None (occurrence: None)
  Receive Date: 20090925
  Receipt Date: 20090915
  Transmission Date: 20100115
  Serious: Yes (Other)
  Sender: FDA-Public Use
  Company Number: US-PFIZER INC-2009258011

PATIENT
  Sex: Female
  Weight: 88.209 kg

DRUGS (5)
  1. GEODON [Suspect]
     Indication: MAJOR DEPRESSION
     Dosage: 80 MG DAILY
     Route: 048
     Dates: start: 20090720, end: 20090720
  2. GEODON [Suspect]
     Indication: DRUG DEPENDENCE
  3. CYMBALTA [Concomitant]
     Dosage: UNK
     Dates: start: 20090720
  4. AMBIEN [Concomitant]
     Dosage: UNK
     Dates: start: 20090720
  5. BUSPAR [Concomitant]
     Dosage: UNK
     Dates: start: 20090720

REACTIONS (3)
  - INCORRECT DOSE ADMINISTERED [None]
  - LOSS OF CONSCIOUSNESS [None]
  - OVERDOSE [None]
